FAERS Safety Report 25172959 (Version 1)
Quarter: 2025Q2

REPORT INFORMATION
  Report Type: Spontaneous
  Country: US (occurrence: None)
  Receive Date: 20250407
  Receipt Date: 20250407
  Transmission Date: 20250717
  Serious: No
  Sender: FDA-CTU
  Company Number: None

PATIENT
  Age: 78 Year
  Sex: Female

DRUGS (1)
  1. LENALIDOMIDE [Suspect]
     Active Substance: LENALIDOMIDE
     Indication: Plasma cell myeloma
     Dosage: FREQUENCY : DAILY;?
     Route: 048
     Dates: start: 20241212

REACTIONS (11)
  - Peripheral swelling [None]
  - Blister [None]
  - Abdominal pain [None]
  - Abdominal distension [None]
  - Nausea [None]
  - Vomiting [None]
  - Dyspepsia [None]
  - Eructation [None]
  - Diastolic dysfunction [None]
  - Tachycardia [None]
  - Hypertension [None]

NARRATIVE: CASE EVENT DATE: 20250124
